FAERS Safety Report 10790790 (Version 2)
Quarter: 2015Q1

REPORT INFORMATION
  Report Type: Report from Study
  Country: US (occurrence: US)
  Receive Date: 20150212
  Receipt Date: 20150226
  Transmission Date: 20150721
  Serious: Yes (Death, Hospitalization)
  Sender: FDA-Public Use
  Company Number: US-ACTELION-A-NJ2015-112446

PATIENT
  Age: 80 Year
  Sex: Male

DRUGS (2)
  1. VELETRI [Suspect]
     Active Substance: EPOPROSTENOL
     Indication: PULMONARY ARTERIAL HYPERTENSION
     Dosage: 40 NG/KG, PER MIN
     Route: 042
     Dates: start: 20130723, end: 20150201
  2. COUMADIN [Concomitant]
     Active Substance: WARFARIN SODIUM

REACTIONS (7)
  - Ascites [Fatal]
  - Right ventricular failure [Fatal]
  - Dyspnoea [Fatal]
  - Oedema [Fatal]
  - Staphylococcal infection [Fatal]
  - Pneumonia [Fatal]
  - Hypoxia [Fatal]

NARRATIVE: CASE EVENT DATE: 20150201
